FAERS Safety Report 4483823-2 (Version None)
Quarter: 2004Q4

REPORT INFORMATION
  Report Type: 
  Country: None (occurrence: None)
  Receive Date: 20041025
  Receipt Date: 20021211
  Transmission Date: 20050328
  Serious: Yes (Death, Life-Threatening, Other)
  Sender: FDA-Public Use
  Company Number: 200221800GDDC

PATIENT
  Age: 79 Year
  Sex: Male
  Weight: 85 kg

DRUGS (16)
  1. CLEXANE [Suspect]
     Indication: ACUTE CORONARY SYNDROME
     Route: 058
     Dates: start: 20021120, end: 20021120
  2. CLEXANE [Suspect]
     Indication: AGE INDETERMINATE MYOCARDIAL INFARCTION
     Route: 058
     Dates: start: 20021120, end: 20021120
  3. ATENOLOL [Concomitant]
     Indication: ANGINA PECTORIS
     Route: 048
  4. ATENOLOL [Concomitant]
     Indication: HYPERTENSION
     Route: 048
  5. ASPIRIN [Concomitant]
     Indication: ANGINA PECTORIS
     Route: 048
  6. ASPIRIN [Concomitant]
     Indication: HYPERTENSION
     Route: 048
  7. ISOSORBIDE MONONITRATE [Concomitant]
     Indication: ANGINA PECTORIS
     Route: 048
  8. ISOSORBIDE MONONITRATE [Concomitant]
     Indication: HYPERTENSION
     Route: 048
  9. AMLODIPINE [Concomitant]
     Indication: ANGINA PECTORIS
     Route: 048
  10. AMLODIPINE [Concomitant]
     Indication: HYPERTENSION
     Route: 048
  11. FRUSEMIDE [Concomitant]
     Indication: ANGINA PECTORIS
     Route: 048
  12. FRUSEMIDE [Concomitant]
     Indication: HYPERTENSION
     Route: 048
  13. LISINOPRIL [Concomitant]
     Route: 048
  14. CYCLIZINE [Concomitant]
     Indication: NAUSEA
     Route: 048
  15. FOSFESTROL [Concomitant]
     Indication: PROSTATE CANCER
     Route: 048
  16. GOSERELIN [Concomitant]
     Indication: PROSTATE CANCER
     Route: 048

REACTIONS (14)
  - ANGIONEUROTIC OEDEMA [None]
  - BLOOD CREATININE INCREASED [None]
  - BRADYCARDIA [None]
  - CARDIAC DISORDER [None]
  - CHEST PAIN [None]
  - CORONARY ARTERY DISEASE [None]
  - CORONARY ARTERY OCCLUSION [None]
  - CORONARY ARTERY STENOSIS [None]
  - DYSPNOEA [None]
  - ELECTROCARDIOGRAM ST SEGMENT DEPRESSION [None]
  - HAEMOGLOBIN DECREASED [None]
  - HYPOTENSION [None]
  - TROPONIN I INCREASED [None]
  - WHITE BLOOD CELL COUNT INCREASED [None]
